FAERS Safety Report 9514848 (Version 1)
Quarter: 2013Q3

REPORT INFORMATION
  Report Type: Spontaneous
  Country: US (occurrence: None)
  Receive Date: 20130909
  Receipt Date: 20130909
  Transmission Date: 20140515
  Serious: Yes (Death)
  Sender: FDA-Public Use
  Company Number: 1308-1135

PATIENT
  Age: 84 Year
  Sex: Male

DRUGS (1)
  1. EYELEA [Suspect]
     Indication: MACULAR DEGENERATION

REACTIONS (1)
  - Death [None]
